FAERS Safety Report 4873382-4 (Version None)
Quarter: 2006Q1

REPORT INFORMATION
  Report Type: 
  Country: None (occurrence: None)
  Receive Date: 20060105
  Receipt Date: 20051222
  Transmission Date: 20060701
  Serious: Yes (Hospitalization)
  Sender: FDA-Public Use
  Company Number: FRWYE257922DEC05

PATIENT
  Age: 48 Year
  Sex: Male

DRUGS (3)
  1. ENBREL [Suspect]
     Indication: PSORIATIC ARTHROPATHY
     Route: 058
     Dates: start: 20031101, end: 20041130
  2. ENBREL [Suspect]
     Route: 058
     Dates: start: 20041201, end: 20050915
  3. ENBREL [Suspect]
     Dosage: UNKNOWN
     Route: 058
     Dates: start: 20051001

REACTIONS (3)
  - ACCOMMODATION DISORDER [None]
  - HEADACHE [None]
  - NERVOUSNESS [None]
